FAERS Safety Report 11862929 (Version 1)
Quarter: 2015Q4

REPORT INFORMATION
  Report Type: Spontaneous
  Country: US (occurrence: None)
  Receive Date: 20151222
  Receipt Date: 20151222
  Transmission Date: 20160305
  Serious: Yes (Life-Threatening, Hospitalization)
  Sender: FDA-Public Use
  Company Number: None

PATIENT
  Age: 56 Year
  Sex: Female
  Weight: 92.76 kg

DRUGS (10)
  1. BACTRIM [Concomitant]
     Active Substance: SULFAMETHOXAZOLE\TRIMETHOPRIM
  2. HYDROCO APAP [Concomitant]
  3. VITIAM D [Concomitant]
  4. LYRICA [Concomitant]
     Active Substance: PREGABALIN
  5. BACTRIM [Suspect]
     Active Substance: SULFAMETHOXAZOLE\TRIMETHOPRIM
     Indication: PERIPHERAL SWELLING
     Dosage: 2 PILLS TWICE DAILY YES BY MOUTH
     Route: 048
  6. VITAMIN D [Concomitant]
     Active Substance: CHOLECALCIFEROL
  7. TUMS [Concomitant]
     Active Substance: CALCIUM CARBONATE
  8. STOOL SOFTNER [Concomitant]
  9. CELECOXIB. [Concomitant]
     Active Substance: CELECOXIB
  10. ERYTAB [Concomitant]

REACTIONS (10)
  - Headache [None]
  - Urticaria [None]
  - Rash [None]
  - Asthenia [None]
  - Dyspepsia [None]
  - Influenza [None]
  - Rash generalised [None]
  - Nervousness [None]
  - Pancytopenia [None]
  - Abdominal discomfort [None]

NARRATIVE: CASE EVENT DATE: 20151124
